FAERS Safety Report 23061644 (Version 1)
Quarter: 2023Q4

REPORT INFORMATION
  Report Type: Spontaneous
  Country: RU (occurrence: RU)
  Receive Date: 20231013
  Receipt Date: 20231013
  Transmission Date: 20240109
  Serious: Yes (Life-Threatening)
  Sender: FDA-Public Use
  Company Number: None

PATIENT
  Age: 11 Year
  Sex: Male
  Weight: 39 kg

DRUGS (1)
  1. FIASP [Suspect]
     Active Substance: INSULIN ASPART
     Indication: Product used for unknown indication
     Dosage: UNK
     Route: 058
     Dates: start: 20230301, end: 20230329

REACTIONS (4)
  - Rash [Recovering/Resolving]
  - Blood glucose increased [Recovering/Resolving]
  - Injection site pain [Recovering/Resolving]
  - Injection site pruritus [Recovering/Resolving]
